FAERS Safety Report 15399566 (Version 1)
Quarter: 2018Q3

REPORT INFORMATION
  Report Type: Report from Study
  Country: US (occurrence: US)
  Receive Date: 20180918
  Receipt Date: 20180918
  Transmission Date: 20181010
  Serious: No
  Sender: FDA-Public Use
  Company Number: US-AMGEN-USASL2018087320

PATIENT
  Age: 61 Year
  Sex: Female

DRUGS (2)
  1. NEUPOGEN [Suspect]
     Active Substance: FILGRASTIM
     Indication: PERITONEAL DISORDER
  2. NEUPOGEN [Suspect]
     Active Substance: FILGRASTIM
     Indication: INVESTIGATION ABNORMAL
     Dosage: UNK UNK, QD FOR 10 DAYS
     Route: 065

REACTIONS (1)
  - Off label use [Unknown]
